FAERS Safety Report 19704186 (Version 1)
Quarter: 2021Q3

REPORT INFORMATION
  Report Type: Spontaneous
  Country: MY (occurrence: MY)
  Receive Date: 20210814
  Receipt Date: 20210814
  Transmission Date: 20211014
  Serious: Yes (Other)
  Sender: FDA-Public Use
  Company Number: None

PATIENT
  Age: 39 Year
  Sex: Male
  Weight: 52 kg

DRUGS (1)
  1. KIRKLAND SIGNATURE MINOXIDIL [Suspect]
     Active Substance: MINOXIDIL
     Indication: ALOPECIA
     Dates: start: 20210702, end: 20210813

REACTIONS (9)
  - Loss of libido [None]
  - Dizziness [None]
  - Headache [None]
  - Erectile dysfunction [None]
  - Palpitations [None]
  - Neck pain [None]
  - Penis disorder [None]
  - Insomnia [None]
  - Ejaculation disorder [None]

NARRATIVE: CASE EVENT DATE: 20210802
